FAERS Safety Report 17028382 (Version 4)
Quarter: 2020Q1

REPORT INFORMATION
  Report Type: Spontaneous
  Country: AU (occurrence: AU)
  Receive Date: 20191113
  Receipt Date: 20200218
  Transmission Date: 20200409
  Serious: Yes (Other)
  Sender: FDA-Public Use
  Company Number: AU-SAMSUNG BIOEPIS-SB-2019-33420

PATIENT
  Age: 64 Year
  Sex: Male

DRUGS (7)
  1. PRAZOSIN. [Concomitant]
     Active Substance: PRAZOSIN
     Indication: PRODUCT USED FOR UNKNOWN INDICATION
     Dosage: UNKNOWN
     Route: 065
  2. METHOTREXATE. [Concomitant]
     Active Substance: METHOTREXATE
     Route: 065
  3. METHOTREXATE. [Concomitant]
     Active Substance: METHOTREXATE
     Indication: PRODUCT USED FOR UNKNOWN INDICATION
     Dosage: 15-10 MG/WEEK-FRIDAY
     Route: 065
  4. FOLIC ACID. [Concomitant]
     Active Substance: FOLIC ACID
     Indication: PRODUCT USED FOR UNKNOWN INDICATION
     Route: 065
  5. BRENZYS [Suspect]
     Active Substance: ETANERCEPT
     Indication: RHEUMATOID ARTHRITIS
     Dosage: UNKNOWN
     Route: 058
     Dates: start: 201908, end: 201910
  6. BRENZYS [Suspect]
     Active Substance: ETANERCEPT
     Indication: PROSTATISM
  7. BRENZYS [Suspect]
     Active Substance: ETANERCEPT
     Indication: SYNOVITIS

REACTIONS (7)
  - Product use in unapproved indication [Unknown]
  - Acne [Unknown]
  - Pancytopenia [Recovered/Resolved]
  - Product substitution issue [Unknown]
  - Urticaria [Unknown]
  - Drug ineffective for unapproved indication [Unknown]
  - Rash maculo-papular [Unknown]

NARRATIVE: CASE EVENT DATE: 20191028
